FAERS Safety Report 17764897 (Version 5)
Quarter: 2021Q4

REPORT INFORMATION
  Report Type: Report from Study
  Country: CN (occurrence: CN)
  Receive Date: 20200511
  Receipt Date: 20211012
  Transmission Date: 20220303
  Serious: Yes (Death, Hospitalization)
  Sender: FDA-Public Use
  Company Number: CN-ROCHE-2526232

PATIENT
  Age: 75 Year
  Sex: Female
  Weight: 69 kg

DRUGS (115)
  1. PLACEBO [Suspect]
     Active Substance: UNSPECIFIED INGREDIENT
     Indication: Ovarian cancer
     Dosage: DATE OF MOST RECENT DOSE OF PLACEBO PRIOR TO ADVERSE EVENT ONSET: 04/FEB/2020
     Route: 042
     Dates: start: 20181120
  2. BEVACIZUMAB [Suspect]
     Active Substance: BEVACIZUMAB
     Indication: Ovarian cancer
     Dosage: DOSE: 15 MG/KG?DATE OF MOST RECENT DOSE OF BEVACIZUMAB 1110 MG PRIOR TO ADVERSE EVENT ONSET: 02/JAN/
     Route: 042
     Dates: start: 20181211
  3. CARBOPLATIN [Suspect]
     Active Substance: CARBOPLATIN
     Indication: Ovarian cancer
     Dosage: DOSE OF  CARBOPLATIN AT A DOSE TO ACHIEVE A TARGET AREA UNDER THE CURVE (AUC) OF 6 MILLIGRAMS PER MI
     Route: 042
     Dates: start: 20181120
  4. PACLITAXEL [Suspect]
     Active Substance: PACLITAXEL
     Indication: Ovarian cancer
     Dosage: ON 02/JAN/2019, SHE RECEIVED MOST RECENT DOSE OF PACLITAXEL.?ON 06/MAR/2019, MOST RECENT DOSE (300 M
     Route: 042
     Dates: start: 20181120
  5. AMIFOSTINE [Concomitant]
     Active Substance: AMIFOSTINE
     Indication: Prophylaxis
     Dates: start: 20190102, end: 20190102
  6. AMIFOSTINE [Concomitant]
     Active Substance: AMIFOSTINE
     Dates: start: 20190306, end: 20190306
  7. AMIFOSTINE [Concomitant]
     Active Substance: AMIFOSTINE
     Dates: start: 20191113, end: 20191113
  8. AMIFOSTINE [Concomitant]
     Active Substance: AMIFOSTINE
     Dates: start: 20191023, end: 20191023
  9. LEUCOGEN [Concomitant]
     Active Substance: LEUCOGEN
     Indication: Thrombocytopenia
     Route: 048
     Dates: start: 20190315, end: 20190325
  10. LEUCOGEN [Concomitant]
     Active Substance: LEUCOGEN
     Dates: start: 20190329, end: 20190418
  11. LEUCOGEN [Concomitant]
     Active Substance: LEUCOGEN
     Dates: start: 20190510, end: 20190519
  12. GLUTATHIONE [Concomitant]
     Active Substance: GLUTATHIONE
     Indication: Liver injury
     Route: 042
     Dates: start: 20200115, end: 20200115
  13. GLUTATHIONE [Concomitant]
     Active Substance: GLUTATHIONE
     Dates: start: 20191225, end: 20191225
  14. GLUTATHIONE [Concomitant]
     Active Substance: GLUTATHIONE
     Dates: start: 20190822, end: 20190822
  15. GLUTATHIONE [Concomitant]
     Active Substance: GLUTATHIONE
     Dates: start: 20190911, end: 20190911
  16. GLUTATHIONE [Concomitant]
     Active Substance: GLUTATHIONE
     Dates: start: 20190123, end: 20190123
  17. GLUTATHIONE [Concomitant]
     Active Substance: GLUTATHIONE
     Dates: start: 20190213, end: 20190213
  18. GLUTATHIONE [Concomitant]
     Active Substance: GLUTATHIONE
     Dates: start: 20190306, end: 20190306
  19. GLUTATHIONE [Concomitant]
     Active Substance: GLUTATHIONE
     Dates: start: 20190327, end: 20190327
  20. GLUTATHIONE [Concomitant]
     Active Substance: GLUTATHIONE
     Dates: start: 20190418, end: 20190418
  21. GLUTATHIONE [Concomitant]
     Active Substance: GLUTATHIONE
     Dates: start: 20190509, end: 20190509
  22. GLUTATHIONE [Concomitant]
     Active Substance: GLUTATHIONE
     Dates: start: 20190530, end: 20190530
  23. GLUTATHIONE [Concomitant]
     Active Substance: GLUTATHIONE
     Dates: start: 20190711, end: 20190711
  24. GLUTATHIONE [Concomitant]
     Active Substance: GLUTATHIONE
     Dates: start: 20190801, end: 20190801
  25. GLUTATHIONE [Concomitant]
     Active Substance: GLUTATHIONE
     Dates: start: 20191023, end: 20191023
  26. GLUTATHIONE [Concomitant]
     Active Substance: GLUTATHIONE
     Dates: start: 20191113, end: 20191113
  27. GLUTATHIONE [Concomitant]
     Active Substance: GLUTATHIONE
     Dates: start: 20191113, end: 20191113
  28. OMEPRAZOLE SODIUM [Concomitant]
     Active Substance: OMEPRAZOLE SODIUM
     Indication: Gastrointestinal injury
     Route: 042
     Dates: start: 20200115, end: 20200115
  29. OMEPRAZOLE SODIUM [Concomitant]
     Active Substance: OMEPRAZOLE SODIUM
     Route: 042
     Dates: start: 20200204, end: 20200204
  30. LANSOPRAZOLE [Concomitant]
     Active Substance: LANSOPRAZOLE
     Indication: Gastrointestinal injury
     Route: 042
     Dates: start: 20191225, end: 20191225
  31. LANSOPRAZOLE [Concomitant]
     Active Substance: LANSOPRAZOLE
     Dates: start: 20190102, end: 20190102
  32. LANSOPRAZOLE [Concomitant]
     Active Substance: LANSOPRAZOLE
     Dates: start: 20190123, end: 20190123
  33. LANSOPRAZOLE [Concomitant]
     Active Substance: LANSOPRAZOLE
     Dates: start: 20190213, end: 20190213
  34. LANSOPRAZOLE [Concomitant]
     Active Substance: LANSOPRAZOLE
     Dates: start: 20190327, end: 20190327
  35. LANSOPRAZOLE [Concomitant]
     Active Substance: LANSOPRAZOLE
     Dates: start: 20190418, end: 20190418
  36. LANSOPRAZOLE [Concomitant]
     Active Substance: LANSOPRAZOLE
     Dates: start: 20190620, end: 20190620
  37. LANSOPRAZOLE [Concomitant]
     Active Substance: LANSOPRAZOLE
     Dates: start: 20190801, end: 20190801
  38. LANSOPRAZOLE [Concomitant]
     Active Substance: LANSOPRAZOLE
     Dates: start: 20190822, end: 20190822
  39. LANSOPRAZOLE [Concomitant]
     Active Substance: LANSOPRAZOLE
     Dates: start: 20190911, end: 20190911
  40. LANSOPRAZOLE [Concomitant]
     Active Substance: LANSOPRAZOLE
     Dates: start: 20191002, end: 20191002
  41. LANSOPRAZOLE [Concomitant]
     Active Substance: LANSOPRAZOLE
     Dates: start: 20191023, end: 20191023
  42. LANSOPRAZOLE [Concomitant]
     Active Substance: LANSOPRAZOLE
     Route: 042
     Dates: start: 20191113, end: 20191113
  43. LANSOPRAZOLE [Concomitant]
     Active Substance: LANSOPRAZOLE
     Route: 042
     Dates: start: 20191204, end: 20191204
  44. LANSOPRAZOLE [Concomitant]
     Active Substance: LANSOPRAZOLE
     Dates: start: 20190306, end: 20190306
  45. LANSOPRAZOLE [Concomitant]
     Active Substance: LANSOPRAZOLE
     Dates: start: 20190509, end: 20190509
  46. LANSOPRAZOLE [Concomitant]
     Active Substance: LANSOPRAZOLE
     Dates: start: 20190530, end: 20190530
  47. LANSOPRAZOLE [Concomitant]
     Active Substance: LANSOPRAZOLE
     Dates: start: 20190620, end: 20190620
  48. LANSOPRAZOLE [Concomitant]
     Active Substance: LANSOPRAZOLE
     Dates: start: 20190711, end: 20190711
  49. EUTHYROX [Concomitant]
     Active Substance: LEVOTHYROXINE SODIUM
     Indication: Hypothyroidism
     Dates: start: 20190101, end: 20190113
  50. EUTHYROX [Concomitant]
     Active Substance: LEVOTHYROXINE SODIUM
     Dates: start: 20181119, end: 20181227
  51. DEXAMETHASONE ACETATE [Concomitant]
     Active Substance: DEXAMETHASONE ACETATE
     Indication: Hypersensitivity
     Route: 048
     Dates: start: 20190101, end: 20190102
  52. DEXAMETHASONE ACETATE [Concomitant]
     Active Substance: DEXAMETHASONE ACETATE
     Route: 048
     Dates: start: 20190213, end: 20190213
  53. DEXAMETHASONE ACETATE [Concomitant]
     Active Substance: DEXAMETHASONE ACETATE
     Route: 048
     Dates: start: 20190122, end: 20190123
  54. DEXAMETHASONE ACETATE [Concomitant]
     Active Substance: DEXAMETHASONE ACETATE
     Route: 048
     Dates: start: 20190305, end: 20190306
  55. AZASETRON HYDROCHLORIDE;SODIUM CHLORIDE [Concomitant]
     Indication: Vomiting
     Dates: start: 20190102, end: 20190102
  56. AZASETRON HYDROCHLORIDE;SODIUM CHLORIDE [Concomitant]
     Dates: start: 20190123, end: 20190123
  57. AZASETRON HYDROCHLORIDE;SODIUM CHLORIDE [Concomitant]
     Dates: start: 20190306, end: 20190306
  58. AZASETRON HYDROCHLORIDE;SODIUM CHLORIDE [Concomitant]
     Dates: start: 20190213, end: 20190213
  59. POTASSIUM CHLORIDE [Concomitant]
     Active Substance: POTASSIUM CHLORIDE
     Indication: Blood potassium decreased
     Dates: start: 20190102, end: 20190102
  60. POTASSIUM CHLORIDE [Concomitant]
     Active Substance: POTASSIUM CHLORIDE
     Dates: start: 20191002, end: 20191002
  61. POTASSIUM CHLORIDE [Concomitant]
     Active Substance: POTASSIUM CHLORIDE
     Dates: start: 20191023, end: 20191023
  62. POTASSIUM CHLORIDE [Concomitant]
     Active Substance: POTASSIUM CHLORIDE
     Dates: start: 20191204, end: 20191204
  63. POTASSIUM CHLORIDE [Concomitant]
     Active Substance: POTASSIUM CHLORIDE
     Route: 042
     Dates: start: 20191225, end: 20191225
  64. POTASSIUM CHLORIDE [Concomitant]
     Active Substance: POTASSIUM CHLORIDE
     Route: 042
     Dates: start: 20200115, end: 20200115
  65. POTASSIUM CHLORIDE [Concomitant]
     Active Substance: POTASSIUM CHLORIDE
     Route: 042
     Dates: start: 20200204, end: 20200204
  66. POTASSIUM CHLORIDE [Concomitant]
     Active Substance: POTASSIUM CHLORIDE
     Dates: start: 20191113, end: 20191113
  67. POTASSIUM CHLORIDE [Concomitant]
     Active Substance: POTASSIUM CHLORIDE
     Dates: start: 20190123, end: 20190123
  68. POTASSIUM CHLORIDE [Concomitant]
     Active Substance: POTASSIUM CHLORIDE
     Dates: start: 20190213, end: 20190213
  69. POTASSIUM CHLORIDE [Concomitant]
     Active Substance: POTASSIUM CHLORIDE
     Dates: start: 20190620, end: 20190620
  70. POTASSIUM CHLORIDE [Concomitant]
     Active Substance: POTASSIUM CHLORIDE
     Dates: start: 20190711, end: 20190711
  71. POTASSIUM CHLORIDE [Concomitant]
     Active Substance: POTASSIUM CHLORIDE
     Dates: start: 20190801, end: 20190801
  72. POTASSIUM CHLORIDE [Concomitant]
     Active Substance: POTASSIUM CHLORIDE
     Dates: start: 20190822, end: 20190822
  73. ZINACEF [Concomitant]
     Active Substance: CEFUROXIME SODIUM
     Indication: Upper respiratory tract infection
     Dates: start: 20190118, end: 20190127
  74. ZINACEF [Concomitant]
     Active Substance: CEFUROXIME SODIUM
     Dates: start: 20190114, end: 20190117
  75. ENEMAC [Concomitant]
     Indication: Constipation
     Dates: start: 20181231, end: 20190103
  76. ENEMAC [Concomitant]
     Dates: start: 20190307, end: 20190307
  77. ENEMAC [Concomitant]
     Dates: start: 20190802, end: 20190802
  78. LACTULOSE [Concomitant]
     Active Substance: LACTULOSE
     Indication: Constipation
     Route: 048
     Dates: start: 20190123, end: 20190123
  79. CALCIUM CARBONATE [Concomitant]
     Active Substance: CALCIUM CARBONATE
     Indication: Mineral supplementation
     Dates: start: 20190329
  80. VITAMIN D3 [Concomitant]
     Active Substance: CHOLECALCIFEROL
     Indication: Mineral supplementation
     Dates: start: 20190329
  81. CALCIUM GLUCONATE [Concomitant]
     Active Substance: CALCIUM GLUCONATE
     Indication: Hypocalcaemia
     Dates: start: 20190620, end: 20190620
  82. SODIUM LACTATE RINGER^S [Concomitant]
     Indication: Infusion
     Dates: start: 20190620, end: 20190620
  83. SODIUM LACTATE RINGER^S [Concomitant]
     Dates: start: 20190711, end: 20190711
  84. HEPARIN SODIUM [Concomitant]
     Active Substance: HEPARIN SODIUM
     Dates: start: 20190822, end: 20190822
  85. HEPARIN SODIUM [Concomitant]
     Active Substance: HEPARIN SODIUM
     Dates: start: 20190911, end: 20190911
  86. PALONOSETRON HYDROCHLORIDE [Concomitant]
     Active Substance: PALONOSETRON HYDROCHLORIDE
     Indication: Prophylaxis of nausea and vomiting
     Dates: start: 20191002, end: 20191002
  87. PALONOSETRON HYDROCHLORIDE [Concomitant]
     Active Substance: PALONOSETRON HYDROCHLORIDE
     Dates: start: 20191023, end: 20191023
  88. SODIUM CHLORIDE [Concomitant]
     Active Substance: SODIUM CHLORIDE
     Dates: start: 20191002, end: 20191002
  89. SODIUM CHLORIDE [Concomitant]
     Active Substance: SODIUM CHLORIDE
     Dates: start: 20191023, end: 20191023
  90. GINKGO [Concomitant]
     Active Substance: GINKGO
     Dates: start: 2008
  91. INVERT SUGAR AND ELECTROLYTES [Concomitant]
     Indication: Electrolyte imbalance
     Dates: start: 20190102, end: 20190102
  92. INVERT SUGAR AND ELECTROLYTES [Concomitant]
     Dates: start: 20190123, end: 20190123
  93. INVERT SUGAR AND ELECTROLYTES [Concomitant]
     Dates: start: 20190213, end: 20190213
  94. INVERT SUGAR AND ELECTROLYTES [Concomitant]
     Dates: start: 20190306, end: 20190306
  95. INVERT SUGAR AND ELECTROLYTES [Concomitant]
     Dates: start: 20190327, end: 20190327
  96. INVERT SUGAR AND ELECTROLYTES [Concomitant]
     Dates: start: 20190418, end: 20190418
  97. INVERT SUGAR AND ELECTROLYTES [Concomitant]
     Dates: start: 20190509, end: 20190509
  98. INVERT SUGAR AND ELECTROLYTES [Concomitant]
     Dates: start: 20190530, end: 20190530
  99. DEXAMETHASONE SODIUM PHOSPHATE [Concomitant]
     Active Substance: DEXAMETHASONE SODIUM PHOSPHATE
     Indication: Hypersensitivity
     Route: 042
     Dates: start: 20190123, end: 20190123
  100. DEXAMETHASONE SODIUM PHOSPHATE [Concomitant]
     Active Substance: DEXAMETHASONE SODIUM PHOSPHATE
     Route: 042
     Dates: start: 20190213, end: 20190213
  101. DEXAMETHASONE SODIUM PHOSPHATE [Concomitant]
     Active Substance: DEXAMETHASONE SODIUM PHOSPHATE
     Route: 042
     Dates: start: 20190306, end: 20190306
  102. ACETYLCYSTEINE [Concomitant]
     Active Substance: ACETYLCYSTEINE
     Indication: Upper respiratory tract infection
     Dates: start: 20190118, end: 20190127
  103. CEFETAMET PIVOXIL HYDROCHLORIDE [Concomitant]
     Indication: Respiratory tract infection
     Dates: start: 20190118, end: 20190127
  104. BERBERINE [Concomitant]
     Active Substance: BERBERINE
     Indication: Diarrhoea
     Dates: start: 20190803, end: 20200205
  105. BERBERINE [Concomitant]
     Active Substance: BERBERINE
     Dates: start: 20190731, end: 20190801
  106. LEVAMLODIPINE MALEATE [Concomitant]
     Active Substance: LEVAMLODIPINE MALEATE
     Dates: start: 2008
  107. JUJUBE [Concomitant]
     Indication: Leukopenia
     Dates: start: 20190308
  108. EJIAO [Concomitant]
     Indication: Leukopenia
     Dates: start: 20190308
  109. BLOOD GINSENG [Concomitant]
     Indication: Leukopenia
     Dates: start: 20190308
  110. RADIX SOPHORAE FLAVESCENTIS [Concomitant]
     Indication: Leukopenia
     Dates: start: 20190308
  111. ASTRAGALUS [Concomitant]
     Indication: Leukopenia
     Dates: start: 20190308
  112. ANGELICA [Concomitant]
     Indication: Leukopenia
     Dates: start: 20190308
  113. HERBALS [Concomitant]
     Active Substance: HERBALS
     Dates: start: 20190718
  114. RADIX ISATIDIS [Concomitant]
     Dates: start: 20190718
  115. MUNG BEAN [Concomitant]
     Active Substance: MUNG BEAN
     Dates: start: 20190718

REACTIONS (2)
  - Immune-mediated nephritis [Recovered/Resolved]
  - Hypothyroidism [Unknown]

NARRATIVE: CASE EVENT DATE: 20190121
